FAERS Safety Report 8987721 (Version 1)
Quarter: 2012Q4

REPORT INFORMATION
  Report Type: 
  Country: US (occurrence: US)
  Receive Date: 20121227
  Receipt Date: 20121227
  Transmission Date: 20130627
  Serious: No
  Sender: FDA-Public Use
  Company Number: US-PFIZER INC-2012326922

PATIENT
  Age: 20 Year
  Sex: Male

DRUGS (2)
  1. EFFEXOR XR [Suspect]
     Dosage: 150 mg, daily
     Dates: start: 2011
  2. WELLBUTRIN [Concomitant]
     Dosage: 150 mg, daily

REACTIONS (1)
  - Drug screen false positive [Unknown]
